FAERS Safety Report 9715774 (Version 1)
Quarter: 2013Q4

REPORT INFORMATION
  Report Type: Spontaneous
  Country: US (occurrence: US)
  Receive Date: 20131127
  Receipt Date: 20131127
  Transmission Date: 20140711
  Serious: No
  Sender: FDA-Public Use
  Company Number: US-009507513-1311USA008242

PATIENT
  Sex: Female

DRUGS (4)
  1. JANUMET XR [Suspect]
     Indication: DIABETES MELLITUS
     Dosage: 2 TABLETS ONCE A DAY WITH EVENING MEAL (50/1000)
     Route: 048
  2. JANUMET XR [Suspect]
     Dosage: 2 TABLETS ONCE A DAY WITH EVENING MEAL (50/1000)
     Route: 048
     Dates: start: 2013, end: 2013
  3. JANUMET XR [Suspect]
     Dosage: 2 TABLETS ONCE A DAY WITH EVENING MEAL (50/1000)
     Route: 048
     Dates: start: 2013
  4. MK-9378 [Suspect]
     Route: 048

REACTIONS (2)
  - Drug ineffective [Unknown]
  - Drug ineffective [Unknown]
